FAERS Safety Report 4471750-6 (Version None)
Quarter: 2004Q4

REPORT INFORMATION
  Report Type: 
  Country: None (occurrence: None)
  Receive Date: 20041006
  Receipt Date: 20040920
  Transmission Date: 20050328
  Serious: Yes (Other)
  Sender: FDA-Public Use
  Company Number: 2004234148JP

PATIENT
  Age: 33 Year
  Sex: Female

DRUGS (2)
  1. IDAMYCIN [Suspect]
     Indication: ACUTE MYELOID LEUKAEMIA
     Dosage: CYCLIC
  2. CYTOSAR-U [Suspect]
     Indication: ACUTE MYELOID LEUKAEMIA
     Dosage: CYCLIC

REACTIONS (16)
  - ANAEMIA [None]
  - C-REACTIVE PROTEIN INCREASED [None]
  - CLOSTRIDIUM BACTERAEMIA [None]
  - CONDITION AGGRAVATED [None]
  - FALL [None]
  - HAEMOLYTIC ANAEMIA [None]
  - HEPAPLASTIN DECREASED [None]
  - LOSS OF CONSCIOUSNESS [None]
  - OEDEMA PERIPHERAL [None]
  - PAIN [None]
  - PLATELET COUNT DECREASED [None]
  - PYREXIA [None]
  - SEPSIS [None]
  - SUBCUTANEOUS EMPHYSEMA [None]
  - SWELLING [None]
  - WHITE BLOOD CELL COUNT DECREASED [None]
